FAERS Safety Report 9801924 (Version 1)
Quarter: 2014Q1

REPORT INFORMATION
  Report Type: Spontaneous
  Country: US (occurrence: US)
  Receive Date: 20140107
  Receipt Date: 20140107
  Transmission Date: 20141002
  Serious: No
  Sender: FDA-Public Use
  Company Number: US-ALLERGAN-1316720US

PATIENT
  Sex: 0

DRUGS (1)
  1. ACZONE [Suspect]
     Indication: PRODUCT USED FOR UNKNOWN INDICATION

REACTIONS (3)
  - Rash erythematous [Unknown]
  - Dry skin [Unknown]
  - Dry skin [Unknown]
